FAERS Safety Report 16969580 (Version 1)
Quarter: 2019Q4

REPORT INFORMATION
  Report Type: Spontaneous
  Country: GB (occurrence: GB)
  Receive Date: 20191029
  Receipt Date: 20191029
  Transmission Date: 20200122
  Serious: Yes (Other)
  Sender: FDA-Public Use
  Company Number: GB-TEVA-2019-GB-1128296

PATIENT
  Age: 42 Year
  Sex: Male
  Weight: 56.69 kg

DRUGS (1)
  1. NAPROXEN. [Suspect]
     Active Substance: NAPROXEN
     Indication: PAIN
     Dosage: INSTEAD OF IBUPROFEN.
     Route: 048
     Dates: start: 20180503, end: 20180523

REACTIONS (5)
  - Anxiety [Recovered/Resolved]
  - Panic attack [Recovered/Resolved]
  - Palpitations [Recovered/Resolved]
  - Dyspnoea [Recovered/Resolved]
  - Nervousness [Recovered/Resolved]

NARRATIVE: CASE EVENT DATE: 20180510
